FAERS Safety Report 10836086 (Version 2)
Quarter: 2015Q1

REPORT INFORMATION
  Report Type: Spontaneous
  Country: TR (occurrence: TR)
  Receive Date: 20150219
  Receipt Date: 20150313
  Transmission Date: 20150721
  Serious: Yes (Other)
  Sender: FDA-Public Use
  Company Number: TR-ALLERGAN-1503074US

PATIENT
  Age: 64 Year
  Sex: Female

DRUGS (1)
  1. OZURDEX [Suspect]
     Active Substance: DEXAMETHASONE
     Indication: MACULAR OEDEMA
     Dosage: UNK, SINGLE
     Route: 031

REACTIONS (4)
  - Visual acuity reduced [Recovering/Resolving]
  - Device dislocation [Unknown]
  - Off label use [Unknown]
  - Corneal oedema [Not Recovered/Not Resolved]
